FAERS Safety Report 5278335-2 (Version None)
Quarter: 2007Q1

REPORT INFORMATION
  Report Type: 
  Country: None (occurrence: None)
  Receive Date: 20070328
  Receipt Date: 20070315
  Transmission Date: 20070707
  Serious: Yes (Hospitalization)
  Sender: FDA-Public Use
  Company Number: CA-NOVOPROD-261753

PATIENT

DRUGS (1)
  1. NIASTASE [Suspect]
     Indication: SURGERY

REACTIONS (1)
  - CEREBROVASCULAR ACCIDENT [None]
